FAERS Safety Report 14651110 (Version 1)
Quarter: 2018Q1

REPORT INFORMATION
  Report Type: Spontaneous
  Country: ES (occurrence: ES)
  Receive Date: 20180316
  Receipt Date: 20180316
  Transmission Date: 20180509
  Serious: Yes (Hospitalization)
  Sender: FDA-Public Use
  Company Number: ES-PFIZER INC-2018101504

PATIENT
  Age: 57 Year
  Sex: Male
  Weight: 86 kg

DRUGS (7)
  1. AMLODIPINE [Concomitant]
     Active Substance: AMLODIPINE BESYLATE
     Dosage: 10 MG, 1X/DAY
     Route: 048
  2. EMCONCOR [Concomitant]
     Active Substance: BISOPROLOL FUMARATE
     Dosage: 5 MG, 1X/DAY
     Route: 048
  3. CARDURAN NEO [Concomitant]
     Active Substance: DOXAZOSIN MESYLATE
     Dosage: 8 MG, 1X/DAY
     Route: 048
  4. LOPID [Concomitant]
     Active Substance: GEMFIBROZIL
     Dosage: 600 MG, 1X/DAY
     Route: 048
  5. OMEPRAZOL [Concomitant]
     Active Substance: OMEPRAZOLE
     Dosage: UNK
  6. CHAMPIX [Suspect]
     Active Substance: VARENICLINE TARTRATE
     Dosage: 1 MG, 2X/DAY (1MG/12 HOURS)
     Route: 048
     Dates: start: 20180129, end: 20180207
  7. ALDACTONE [Concomitant]
     Active Substance: SPIRONOLACTONE
     Dosage: 100 MG, 1X/DAY
     Route: 048

REACTIONS (2)
  - Sinus tachycardia [Recovered/Resolved]
  - Aortic dilatation [Unknown]

NARRATIVE: CASE EVENT DATE: 20180201
